FAERS Safety Report 9232602 (Version 1)
Quarter: 2013Q2

REPORT INFORMATION
  Report Type: Spontaneous
  Country: US (occurrence: None)
  Receive Date: 20130415
  Receipt Date: 20130415
  Transmission Date: 20140414
  Serious: Yes (Death, Life-Threatening, Hospitalization)
  Sender: FDA-Public Use
  Company Number: None

PATIENT
  Age: 75 Year
  Sex: Male
  Weight: 112 kg

DRUGS (1)
  1. EXJADE [Suspect]
     Route: 048
     Dates: start: 20130404

REACTIONS (3)
  - Hepatic failure [None]
  - Renal failure [None]
  - Cardiac failure congestive [None]
